FAERS Safety Report 4941091-9 (Version None)
Quarter: 2006Q1

REPORT INFORMATION
  Report Type: 
  Country: None (occurrence: None)
  Receive Date: 20060313
  Receipt Date: 20060301
  Transmission Date: 20060701
  Serious: Yes (Other)
  Sender: FDA-Public Use
  Company Number: 2006GB00363

PATIENT
  Age: 63 Year
  Sex: Male

DRUGS (10)
  1. ATENOLOL [Interacting]
     Route: 048
  2. RAMIPRIL [Suspect]
     Route: 048
     Dates: start: 20010510
  3. MYOCRISIN [Interacting]
     Indication: RHEUMATOID ARTHRITIS
     Route: 065
     Dates: start: 19840101, end: 20020101
  4. ISOSORBIDE MONONITRATE [Concomitant]
     Route: 065
  5. ACETYLSALICYLIC ACID SRT [Concomitant]
     Route: 065
  6. ATORVASTATIN CALCIUM [Concomitant]
     Route: 065
  7. NICORANDIL [Concomitant]
     Route: 065
  8. AMLODIPINE [Concomitant]
     Route: 065
  9. CLOPIDOGREL [Concomitant]
     Route: 065
  10. PREDNISOLONE [Concomitant]
     Route: 065

REACTIONS (3)
  - DRUG INTERACTION [None]
  - NITRITOID CRISIS [None]
  - SYNCOPE VASOVAGAL [None]
